FAERS Safety Report 4559113-6 (Version None)
Quarter: 2005Q1

REPORT INFORMATION
  Report Type: 
  Country: None (occurrence: None)
  Receive Date: 20050119
  Receipt Date: 20050103
  Transmission Date: 20050727
  Serious: Yes (Hospitalization)
  Sender: FDA-Public Use
  Company Number: DSA_25597_2005

PATIENT
  Age: 74 Year
  Sex: Female

DRUGS (12)
  1. ENALAPRIL MALEATE AND HYDROCHLOROTHIAZIDE [Suspect]
     Indication: HYPERTENSION
     Dosage: 1 TAB Q DAY PO
     Route: 048
  2. METFORMIN HCL [Suspect]
     Indication: DIABETES MELLITUS NON-INSULIN-DEPENDENT
     Dosage: 1000 MG TID PO
     Route: 048
     Dates: end: 20040919
  3. SOTALOL HCL [Suspect]
     Indication: CORONARY ARTERY DISEASE
     Dosage: 100 MG Q DAY PO
     Route: 048
     Dates: start: 20040701
  4. GLYBURIDE [Suspect]
     Indication: DIABETES MELLITUS NON-INSULIN-DEPENDENT
     Dosage: 5 MG TID PO
     Route: 048
     Dates: end: 20040919
  5. ANASTROZOLE [Concomitant]
  6. ASPIRIN [Concomitant]
  7. CLOMIPRAMINE HCL [Concomitant]
  8. CLOPIDOGREL BISULFATE [Concomitant]
  9. OXAZEPAM [Concomitant]
  10. PRAVASTATIN SODIUM [Concomitant]
  11. VALPROMIDE [Concomitant]
  12. ZOPICLONE [Concomitant]

REACTIONS (7)
  - BLOOD GLUCOSE INCREASED [None]
  - CATATONIA [None]
  - DRUG INTERACTION [None]
  - GLYCOSYLATED HAEMOGLOBIN INCREASED [None]
  - HYPOGLYCAEMIA [None]
  - MEMORY IMPAIRMENT [None]
  - NERVOUS SYSTEM DISORDER [None]
